FAERS Safety Report 4833286-X (Version None)
Quarter: 2005Q4

REPORT INFORMATION
  Report Type: 
  Country: None (occurrence: None)
  Receive Date: 20051117
  Receipt Date: 20051102
  Transmission Date: 20060501
  Serious: Yes (Hospitalization, Other)
  Sender: FDA-Public Use
  Company Number: MAG-2005-0000395

PATIENT
  Age: 20 Year
  Sex: Female

DRUGS (10)
  1. THEOPHYLLINE [Suspect]
     Indication: ASTHMA
     Dosage: 200 MG,DAILY, ORAL
     Route: 048
     Dates: start: 20050705, end: 20050710
  2. CLARITHROMYCIN [Suspect]
     Indication: ASTHMA
     Dosage: 400 MG,DAILY,ORAL
     Route: 048
     Dates: start: 20050630, end: 20050704
  3. CARBOCISTEINE [Concomitant]
  4. TEPRENONE [Concomitant]
  5. CLOSTRIDIUM BUTYRICUM [Concomitant]
  6. MONTELUKAST SODIUM [Concomitant]
  7. PREDNISOLONE [Concomitant]
  8. FAMOTIDINE [Concomitant]
  9. FLUTICASONE PROPIONATE [Concomitant]
  10. SALMETEROL XINAFOATE [Concomitant]

REACTIONS (3)
  - PIGMENTATION DISORDER [None]
  - RASH ERYTHEMATOUS [None]
  - RASH GENERALISED [None]
